FAERS Safety Report 19406260 (Version 2)
Quarter: 2021Q2

REPORT INFORMATION
  Report Type: Report from Study
  Country: US (occurrence: US)
  Receive Date: 20210611
  Receipt Date: 20210617
  Transmission Date: 20210717
  Serious: Yes (Life-Threatening, Hospitalization, Other)
  Sender: FDA-Public Use
  Company Number: US-VERTEX PHARMACEUTICALS-2021-006199

PATIENT
  Age: 16 Year
  Sex: Male

DRUGS (14)
  1. LANSOPRAZOLE. [Concomitant]
     Active Substance: LANSOPRAZOLE
  2. CREON [Concomitant]
     Active Substance: PANCRELIPASE AMYLASE\PANCRELIPASE LIPASE\PANCRELIPASE PROTEASE
  3. PULMOSAL [Concomitant]
     Active Substance: SODIUM CHLORIDE
  4. ALBUTEROL [SALBUTAMOL] [Concomitant]
     Active Substance: ALBUTEROL
  5. POLYETHYLENE GLYCOL 3350. [Concomitant]
     Active Substance: POLYETHYLENE GLYCOL 3350
  6. FAMOTIDINE. [Concomitant]
     Active Substance: FAMOTIDINE
  7. SINUS RINSE [Concomitant]
     Active Substance: SODIUM BICARBONATE\SODIUM CHLORIDE
  8. TRIKAFTA [Suspect]
     Active Substance: ELEXACAFTOR\IVACAFTOR\TEZACAFTOR
     Indication: CYSTIC FIBROSIS
     Dosage: 2 TABS (100 MG ELEXA/ 50 MG TEZA/ 75 MG IVA) AM; 1 TAB (150MG IVA) PM
     Route: 048
     Dates: start: 20200217, end: 20210415
  9. PULMOZYME [Concomitant]
     Active Substance: DORNASE ALFA
  10. LORATADINE. [Concomitant]
     Active Substance: LORATADINE
  11. MOMETASONE [Concomitant]
     Active Substance: MOMETASONE
  12. VITAMIN D [COLECALCIFEROL] [Concomitant]
     Active Substance: CHOLECALCIFEROL
  13. ZOLOFT [Concomitant]
     Active Substance: SERTRALINE HYDROCHLORIDE
     Dosage: UNK
     Dates: start: 20210315
  14. QVAR [Concomitant]
     Active Substance: BECLOMETHASONE DIPROPIONATE

REACTIONS (2)
  - Suicidal ideation [Unknown]
  - Suicide attempt [Unknown]

NARRATIVE: CASE EVENT DATE: 2020
